FAERS Safety Report 21257518 (Version 1)
Quarter: 2022Q3

REPORT INFORMATION
  Report Type: Spontaneous
  Country: FR (occurrence: FR)
  Receive Date: 20220826
  Receipt Date: 20220826
  Transmission Date: 20221027
  Serious: Yes (Other)
  Sender: FDA-Public Use
  Company Number: None

PATIENT
  Age: 52 Year
  Sex: Male

DRUGS (1)
  1. KETOPROFEN [Suspect]
     Active Substance: KETOPROFEN
     Indication: Tendonitis
     Dosage: UNIT DOSE: 1 DF, FREQUENCY : 1 DAY, DURATION: 2 DAYS
     Route: 065
     Dates: start: 202207, end: 202207

REACTIONS (2)
  - Photosensitivity reaction [Recovering/Resolving]
  - Dermatitis contact [Recovering/Resolving]

NARRATIVE: CASE EVENT DATE: 20220701
